FAERS Safety Report 5399567-9 (Version None)
Quarter: 2007Q3

REPORT INFORMATION
  Report Type: 
  Country: None (occurrence: None)
  Receive Date: 20070727
  Receipt Date: 20070717
  Transmission Date: 20080115
  Serious: Yes (Disabling)
  Sender: FDA-Public Use
  Company Number: DE-PFIZER INC-2007048974

PATIENT
  Sex: Female

DRUGS (3)
  1. LYRICA [Suspect]
     Indication: PAIN
     Dosage: DAILY DOSE:300MG
     Route: 048
  2. LYRICA [Interacting]
     Indication: TRIGEMINAL NEURALGIA
  3. DRONABINOL [Interacting]
     Indication: MULTIPLE SCLEROSIS
     Dosage: DAILY DOSE:5MG

REACTIONS (2)
  - DRUG INTERACTION [None]
  - MUSCULAR WEAKNESS [None]
